FAERS Safety Report 20340072 (Version 2)
Quarter: 2022Q1

REPORT INFORMATION
  Report Type: Spontaneous
  Country: US (occurrence: US)
  Receive Date: 20220117
  Receipt Date: 20220224
  Transmission Date: 20220423
  Serious: No
  Sender: FDA-Public Use
  Company Number: US-TEVA-2022-US-1997510

PATIENT
  Sex: Male

DRUGS (1)
  1. AMPHETAMINE SULFATE\DEXTROAMPHETAMINE [Suspect]
     Active Substance: AMPHETAMINE SULFATE\DEXTROAMPHETAMINE
     Route: 065

REACTIONS (6)
  - Hypersensitivity [Unknown]
  - Rash [Recovered/Resolved]
  - Nasal discomfort [Unknown]
  - Drug ineffective [Unknown]
  - Pain [Recovered/Resolved]
  - Frustration tolerance decreased [Unknown]
